FAERS Safety Report 24768418 (Version 1)
Quarter: 2024Q4

REPORT INFORMATION
  Report Type: Report from Study
  Country: US (occurrence: US)
  Receive Date: 20241223
  Receipt Date: 20241223
  Transmission Date: 20250115
  Serious: Yes (Other)
  Sender: TAKEDA
  Company Number: US-TAKEDA-2024TUS117724

PATIENT
  Sex: Male

DRUGS (1)
  1. FRUQUINTINIB [Suspect]
     Active Substance: FRUQUINTINIB
     Indication: Rectal cancer
     Dosage: 5 MILLIGRAM

REACTIONS (5)
  - Internal haemorrhage [Unknown]
  - Productive cough [Unknown]
  - Haemoptysis [Unknown]
  - Bone pain [Unknown]
  - Oropharyngeal discomfort [Unknown]
